FAERS Safety Report 5485418-0 (Version None)
Quarter: 2007Q4

REPORT INFORMATION
  Report Type: 
  Country: None (occurrence: None)
  Receive Date: 20071015
  Receipt Date: 20071005
  Transmission Date: 20080405
  Serious: Yes (Hospitalization, Disabling)
  Sender: FDA-Public Use
  Company Number: US-BAYER-200712720BCC

PATIENT
  Age: 54 Year
  Sex: Female
  Weight: 45 kg

DRUGS (1)
  1. ALEVE [Suspect]
     Indication: NERVE COMPRESSION
     Dosage: UNIT DOSE: 220 MG
     Route: 048
     Dates: start: 20070101, end: 20070209

REACTIONS (9)
  - ABDOMINAL PAIN [None]
  - ABDOMINAL PAIN UPPER [None]
  - DRUG TOXICITY [None]
  - FOOT AMPUTATION [None]
  - GASTRIC PERFORATION [None]
  - GASTRIC ULCER [None]
  - GASTRIC ULCER SURGERY [None]
  - SKIN DISCOLOURATION [None]
  - TOE AMPUTATION [None]
